FAERS Safety Report 21634322 (Version 1)
Quarter: 2022Q4

REPORT INFORMATION
  Report Type: Spontaneous
  Country: US (occurrence: US)
  Receive Date: 20221123
  Receipt Date: 20221123
  Transmission Date: 20230113
  Serious: No
  Sender: FDA-Public Use
  Company Number: US-Merz Pharmaceuticals GmbH-22-03213

PATIENT
  Sex: Female

DRUGS (2)
  1. XEOMIN [Suspect]
     Active Substance: INCOBOTULINUMTOXINA
     Indication: Blepharospasm
  2. BOTOX [Concomitant]
     Active Substance: ONABOTULINUMTOXINA
     Indication: Blepharospasm

REACTIONS (3)
  - Therapeutic response delayed [Unknown]
  - Therapeutic response decreased [Unknown]
  - Dry eye [Unknown]
